FAERS Safety Report 24220835 (Version 1)
Quarter: 2024Q3

REPORT INFORMATION
  Report Type: Spontaneous
  Country: FR (occurrence: FR)
  Receive Date: 20240818
  Receipt Date: 20240818
  Transmission Date: 20241017
  Serious: Yes (Hospitalization)
  Sender: ROCHE
  Company Number: None

PATIENT
  Age: 74 Year
  Sex: Male

DRUGS (7)
  1. TOCILIZUMAB [Suspect]
     Active Substance: TOCILIZUMAB
     Indication: Rheumatoid arthritis
     Route: 058
     Dates: start: 202404, end: 202407
  2. ESOMEPRAZOLE [Concomitant]
     Active Substance: ESOMEPRAZOLE
  3. EZETIMIBE [Concomitant]
     Active Substance: EZETIMIBE
  4. ACTONEL [Concomitant]
     Active Substance: RISEDRONATE SODIUM
  5. ELIQUIS [Concomitant]
     Active Substance: APIXABAN
  6. PREDNISONE [Concomitant]
     Active Substance: PREDNISONE
  7. OROCAL VITAMINE D3 [Concomitant]

REACTIONS (2)
  - Condition aggravated [Recovering/Resolving]
  - Pulmonary fibrosis [Recovering/Resolving]

NARRATIVE: CASE EVENT DATE: 20240701
